FAERS Safety Report 21131878 (Version 1)
Quarter: 2022Q3

REPORT INFORMATION
  Report Type: Spontaneous
  Country: US (occurrence: None)
  Receive Date: 20220726
  Receipt Date: 20220726
  Transmission Date: 20221026
  Serious: Yes (Hospitalization)
  Sender: FDA-Public Use
  Company Number: None

PATIENT
  Age: 74 Year
  Sex: Male
  Weight: 102 kg

DRUGS (11)
  1. PAXLOVID [Suspect]
     Active Substance: NIRMATRELVIR\RITONAVIR
     Indication: COVID-19 treatment
  2. IPRATROPIUM [Concomitant]
     Active Substance: IPRATROPIUM
  3. LORATADINE [Concomitant]
     Active Substance: LORATADINE
  4. METFORMIN [Concomitant]
     Active Substance: METFORMIN HYDROCHLORIDE
  5. METHOTREXATE [Concomitant]
     Active Substance: METHOTREXATE
  6. TENOFOVIR [Concomitant]
     Active Substance: TENOFOVIR
  7. TOFACITINIB [Concomitant]
     Active Substance: TOFACITINIB
  8. ALBUTEROL [Concomitant]
     Active Substance: ALBUTEROL
  9. ASCORBIC ACID [Concomitant]
     Active Substance: ASCORBIC ACID
  10. FERROUS GLUCONATE [Concomitant]
     Active Substance: FERROUS GLUCONATE
  11. ASPIRIN [Concomitant]
     Active Substance: ASPIRIN

REACTIONS (2)
  - Pyrexia [None]
  - Hypoxia [None]

NARRATIVE: CASE EVENT DATE: 20220711
